FAERS Safety Report 8578292-7 (Version None)
Quarter: 2012Q3

REPORT INFORMATION
  Report Type: 
  Country: None (occurrence: None)
  Receive Date: 20120808
  Receipt Date: 20120730
  Transmission Date: 20120928
  Serious: Yes (Other)
  Sender: FDA-Public Use
  Company Number: US-BAYER-2012-077766

PATIENT
  Age: 24 Year
  Sex: Female

DRUGS (2)
  1. YAZ [Suspect]
     Dosage: UNK
     Dates: start: 20070701, end: 20090701
  2. YAZ [Suspect]
     Dosage: UNK
     Dates: start: 20101001, end: 20111201

REACTIONS (1)
  - GALLBLADDER DISORDER [None]
